FAERS Safety Report 6421691-X (Version None)
Quarter: 2009Q4

REPORT INFORMATION
  Report Type: 
  Country: None (occurrence: None)
  Receive Date: 20091030
  Receipt Date: 20091005
  Transmission Date: 20100525
  Serious: No
  Sender: FDA-Public Use
  Company Number: US-BAYER-200915336BCC

PATIENT
  Sex: Female

DRUGS (5)
  1. ALEVE [Suspect]
     Indication: PAIN
     Dosage: UNIT DOSE: 220 MG
     Route: 048
  2. ALEVE [Suspect]
     Dosage: UNIT DOSE: 220 MG
     Route: 048
  3. TOPROL-XL [Concomitant]
     Route: 065
  4. CENTRUM SILVER [Concomitant]
     Route: 065
  5. CALTRATE D [Concomitant]
     Route: 065

REACTIONS (1)
  - PAIN [None]
